FAERS Safety Report 13782563 (Version 1)
Quarter: 2017Q3

REPORT INFORMATION
  Report Type: Spontaneous
  Country: US (occurrence: US)
  Receive Date: 20170724
  Receipt Date: 20170724
  Transmission Date: 20171127
  Serious: Yes (Other)
  Sender: FDA-Public Use
  Company Number: US-MEDA-2017070019

PATIENT
  Sex: Female

DRUGS (3)
  1. FELBATOL [Suspect]
     Active Substance: FELBAMATE
  2. VIMPAT [Suspect]
     Active Substance: LACOSAMIDE
  3. KEPPRA [Suspect]
     Active Substance: LEVETIRACETAM

REACTIONS (1)
  - Balance disorder [Unknown]
